FAERS Safety Report 23410274 (Version 1)
Quarter: 2024Q1

REPORT INFORMATION
  Report Type: Spontaneous
  Country: US (occurrence: None)
  Receive Date: 20240116
  Receipt Date: 20240116
  Transmission Date: 20240409
  Serious: Yes (Other)
  Sender: FDA-Public Use
  Company Number: None

PATIENT
  Age: 81 Year
  Sex: Male
  Weight: 96.2 kg

DRUGS (1)
  1. PERFLUTREN [Suspect]
     Active Substance: PERFLUTREN
     Indication: Contrast media deposition
     Dosage: OTHER FREQUENCY : OTHER;?
     Route: 040
     Dates: start: 20240105, end: 20240105

REACTIONS (3)
  - Back pain [None]
  - Headache [None]
  - Contrast media reaction [None]

NARRATIVE: CASE EVENT DATE: 20240105
